FAERS Safety Report 14568820 (Version 5)
Quarter: 2019Q2

REPORT INFORMATION
  Report Type: Report from Study
  Country: US (occurrence: US)
  Receive Date: 20180223
  Receipt Date: 20190524
  Transmission Date: 20190711
  Serious: Yes (Hospitalization, Other)
  Sender: FDA-Public Use
  Company Number: US-ACTELION-A-NJ2017-162584

PATIENT
  Sex: Female
  Weight: 75.74 kg

DRUGS (4)
  1. COUMADIN [Concomitant]
     Active Substance: WARFARIN SODIUM
  2. SILDENAFIL CITRATE. [Concomitant]
     Active Substance: SILDENAFIL CITRATE
  3. VELETRI [Suspect]
     Active Substance: EPOPROSTENOL
     Indication: PULMONARY ARTERIAL HYPERTENSION
     Dosage: 12 NG/KG, PER MIN
     Route: 042
  4. LETAIRIS [Concomitant]
     Active Substance: AMBRISENTAN

REACTIONS (11)
  - Gastrointestinal motility disorder [Unknown]
  - Device dislocation [Unknown]
  - Atrial fibrillation [Unknown]
  - Foot fracture [Unknown]
  - Patella fracture [Unknown]
  - Dyspnoea [Unknown]
  - Vomiting [Unknown]
  - Fall [Unknown]
  - Pneumonia [Unknown]
  - Catheter management [Unknown]
  - Malaise [Unknown]
